FAERS Safety Report 22228411 (Version 2)
Quarter: 2023Q2

REPORT INFORMATION
  Report Type: Spontaneous
  Country: US (occurrence: US)
  Receive Date: 20230419
  Receipt Date: 20230428
  Transmission Date: 20230721
  Serious: Yes (Hospitalization)
  Sender: FDA-Public Use
  Company Number: US-PFIZER INC-202300160552

PATIENT
  Age: 69 Year
  Sex: Male

DRUGS (2)
  1. BOSULIF [Suspect]
     Active Substance: BOSUTINIB MONOHYDRATE
     Indication: Acute lymphocytic leukaemia
     Dosage: 300 MG, DAILY, (TAKE 3 TABLETS DAILY)
     Route: 048
     Dates: start: 20230408
  2. SPRYCEL [Concomitant]
     Active Substance: DASATINIB
     Dosage: 140 MG, 1X/DAY
     Route: 048
     Dates: start: 20220715

REACTIONS (7)
  - Headache [Not Recovered/Not Resolved]
  - Head injury [Not Recovered/Not Resolved]
  - Visual impairment [Not Recovered/Not Resolved]
  - Disorientation [Not Recovered/Not Resolved]
  - Nausea [Not Recovered/Not Resolved]
  - Pruritus [Not Recovered/Not Resolved]
  - Off label use [Unknown]

NARRATIVE: CASE EVENT DATE: 20230408
